FAERS Safety Report 19038727 (Version 6)
Quarter: 2021Q2

REPORT INFORMATION
  Report Type: Report from Study
  Country: FR (occurrence: FR)
  Receive Date: 20210322
  Receipt Date: 20210523
  Transmission Date: 20210717
  Serious: Yes (Hospitalization, Other)
  Sender: FDA-Public Use
  Company Number: FR-JNJFOC-20210322584

PATIENT
  Age: 74 Year
  Sex: Female
  Weight: 73 kg

DRUGS (7)
  1. AMBRISENTAN [Concomitant]
     Active Substance: AMBRISENTAN
  2. AMBRISENTAN [Concomitant]
     Active Substance: AMBRISENTAN
     Indication: PULMONARY ARTERIAL HYPERTENSION
     Route: 048
  3. LASILIX [FUROSEMIDE] [Concomitant]
     Active Substance: FUROSEMIDE
     Route: 065
     Dates: start: 20210310
  4. SELEXIPAG [Suspect]
     Active Substance: SELEXIPAG
     Indication: PULMONARY HYPERTENSION
     Route: 048
     Dates: start: 20210213
  5. TADALAFIL. [Concomitant]
     Active Substance: TADALAFIL
  6. TADALAFIL. [Concomitant]
     Active Substance: TADALAFIL
     Indication: PULMONARY ARTERIAL HYPERTENSION
     Route: 048
  7. LASILIX [FUROSEMIDE] [Concomitant]
     Active Substance: FUROSEMIDE

REACTIONS (16)
  - Septic shock [Unknown]
  - Product dose omission issue [Unknown]
  - Bacterial test positive [Unknown]
  - Fungal infection [Not Recovered/Not Resolved]
  - Biliary tract infection [Unknown]
  - Diarrhoea [Unknown]
  - Blood test abnormal [Not Recovered/Not Resolved]
  - Vomiting [Unknown]
  - Oedema peripheral [Recovered/Resolved]
  - Pulmonary embolism [Unknown]
  - Nausea [Unknown]
  - Nervous system disorder [Recovered/Resolved]
  - Cardiac failure [Unknown]
  - Dehydration [Unknown]
  - Respiratory failure [Unknown]
  - Asthenia [Unknown]

NARRATIVE: CASE EVENT DATE: 20210316
